FAERS Safety Report 6288912-8 (Version None)
Quarter: 2009Q3

REPORT INFORMATION
  Report Type: 
  Country: None (occurrence: None)
  Receive Date: 20090729
  Receipt Date: 20090723
  Transmission Date: 20100115
  Serious: Yes (Hospitalization)
  Sender: FDA-Public Use
  Company Number: JP-GENENTECH-287460

PATIENT
  Age: 7 Year
  Sex: Male

DRUGS (1)
  1. RITUXAN [Suspect]
     Indication: NEPHROTIC SYNDROME
     Dosage: 375 MG/M2, UNK
     Route: 065
     Dates: start: 20071101, end: 20071201

REACTIONS (1)
  - AGRANULOCYTOSIS [None]
